FAERS Safety Report 22120752 (Version 1)
Quarter: 2023Q1

REPORT INFORMATION
  Report Type: Spontaneous
  Country: KR (occurrence: KR)
  Receive Date: 20230321
  Receipt Date: 20230321
  Transmission Date: 20230418
  Serious: Yes (Hospitalization)
  Sender: FDA-Public Use
  Company Number: KR-MYLANLABS-2023M1028070

PATIENT
  Sex: Female

DRUGS (2)
  1. CELEBREX [Interacting]
     Active Substance: CELECOXIB
     Indication: Analgesic therapy
     Dosage: 1 DOSAGE FORM, BID (0.5 DAY)
     Route: 065
     Dates: start: 20210705, end: 20210707
  2. CELEBREX [Interacting]
     Active Substance: CELECOXIB
     Indication: Hypertension

REACTIONS (3)
  - Hyponatraemia [Recovered/Resolved]
  - Blood hyposmosis [Recovered/Resolved]
  - Drug interaction [Unknown]

NARRATIVE: CASE EVENT DATE: 20210707
